FAERS Safety Report 14600697 (Version 1)
Quarter: 2018Q1

REPORT INFORMATION
  Report Type: Report from Study
  Country: CO (occurrence: CO)
  Receive Date: 20180305
  Receipt Date: 20180305
  Transmission Date: 20180509
  Serious: Yes (Other)
  Sender: FDA-Public Use
  Company Number: CO-ELI_LILLY_AND_COMPANY-CO201803000333

PATIENT
  Sex: Male

DRUGS (1)
  1. CETUXIMAB. [Suspect]
     Active Substance: CETUXIMAB
     Indication: HEAD AND NECK CANCER
     Dosage: 450 MG/M2, UNKNOWN
     Route: 042

REACTIONS (4)
  - Abdominal pain [Recovering/Resolving]
  - Surgery [Unknown]
  - Odynophagia [Recovering/Resolving]
  - Weight decreased [Unknown]
